FAERS Safety Report 9379847 (Version 1)
Quarter: 2013Q3

REPORT INFORMATION
  Report Type: Report from Study
  Country: CH (occurrence: CH)
  Receive Date: 20130702
  Receipt Date: 20130702
  Transmission Date: 20140515
  Serious: Yes (Other)
  Sender: FDA-Public Use
  Company Number: CH-JNJFOC-20130618419

PATIENT
  Sex: Female

DRUGS (2)
  1. SIMPONI [Suspect]
     Indication: ARTHROPATHY
     Route: 058
     Dates: start: 20130429
  2. PREDNISONE [Concomitant]
     Indication: ARTHROPATHY
     Dates: start: 20120515

REACTIONS (1)
  - Rash pustular [Recovering/Resolving]
